FAERS Safety Report 10744275 (Version 1)
Quarter: 2015Q1

REPORT INFORMATION
  Report Type: Spontaneous
  Country: GB (occurrence: GB)
  Receive Date: 20150128
  Receipt Date: 20150128
  Transmission Date: 20150721
  Serious: Yes (Hospitalization)
  Sender: FDA-Public Use
  Company Number: GB-DRREDDYS-GER/UKI/15/0045609

PATIENT
  Age: 5 Decade
  Sex: Female

DRUGS (2)
  1. QUETIAPINE [Suspect]
     Active Substance: QUETIAPINE
     Indication: PRODUCT USED FOR UNKNOWN INDICATION
  2. ARIPIPRAZOLE. [Suspect]
     Active Substance: ARIPIPRAZOLE
     Indication: SCHIZOPHRENIA
     Route: 048
     Dates: start: 20140626, end: 20140716

REACTIONS (8)
  - Musculoskeletal stiffness [Unknown]
  - Neck pain [Unknown]
  - Migraine [Unknown]
  - Social phobia [None]
  - Affective disorder [None]
  - Haemorrhage [Unknown]
  - Meningitis [Unknown]
  - Anxiety [None]

NARRATIVE: CASE EVENT DATE: 201407
